FAERS Safety Report 8784494 (Version 3)
Quarter: 2013Q1

REPORT INFORMATION
  Report Type: Report from Study
  Country: JP (occurrence: JP)
  Receive Date: 20120911
  Receipt Date: 20130131
  Transmission Date: 20140127
  Serious: Yes (Death)
  Sender: FDA-Public Use
  Company Number: JP-PFIZER INC-2012219100

PATIENT
  Age: 65 Year
  Sex: Male
  Weight: 56 kg

DRUGS (16)
  1. REVATIO [Suspect]
     Indication: PULMONARY FIBROSIS
     Dosage: 10 MG/DAY DIVIDED BY 3 TIMES
     Route: 048
     Dates: start: 20090713, end: 20090713
  2. REVATIO [Suspect]
     Indication: EMPHYSEMA
     Dosage: 10 MG, 3X/DAY
     Route: 048
     Dates: start: 20090714, end: 20090716
  3. REVATIO [Suspect]
     Dosage: 20 MG, 3X/DAY
     Route: 048
     Dates: start: 20090717
  4. TRACLEER [Concomitant]
     Indication: PULMONARY FIBROSIS
     Dosage: UNK
     Route: 048
  5. TRACLEER [Concomitant]
     Indication: EMPHYSEMA
  6. CARELOAD LA [Concomitant]
     Indication: PULMONARY FIBROSIS
     Dosage: UNK
     Route: 048
     Dates: end: 20110123
  7. CARELOAD LA [Concomitant]
     Indication: EMPHYSEMA
  8. LASIX [Concomitant]
     Dosage: UNK
     Route: 048
  9. SPIRIVA [Concomitant]
     Dosage: UNK
     Route: 055
  10. HOKUNALIN [Concomitant]
     Dosage: UNK
     Route: 062
  11. MUCOSAL [Concomitant]
     Dosage: UNK
     Route: 048
  12. TEPRENONE [Concomitant]
     Dosage: UNK
     Route: 048
     Dates: end: 20110107
  13. FAMOTIDINE [Concomitant]
     Dosage: UNK
     Route: 048
     Dates: end: 20110107
  14. SPIRONOLACTONE [Concomitant]
     Dosage: UNK
     Route: 048
     Dates: start: 20090916
  15. ALLOPURINOL [Concomitant]
     Dosage: UNK
     Route: 048
     Dates: start: 20091029
  16. SLOW-K [Concomitant]
     Dosage: UNK
     Route: 048
     Dates: start: 20110108

REACTIONS (1)
  - Right ventricular failure [Fatal]
